FAERS Safety Report 6771462-X (Version None)
Quarter: 2010Q2

REPORT INFORMATION
  Report Type: 
  Country: None (occurrence: None)
  Receive Date: 20100616
  Receipt Date: 20100608
  Transmission Date: 20101027
  Serious: Yes (Hospitalization)
  Sender: FDA-Public Use
  Company Number: US-JNJFOC-20100407719

PATIENT
  Age: 74 Year
  Sex: Female
  Weight: 75.3 kg

DRUGS (16)
  1. EXTRA STRENGTH TYLENOL [Suspect]
     Indication: HEADACHE
     Dosage: ^FOR YEARS^
     Route: 048
  2. EXTRA STRENGTH TYLENOL [Suspect]
     Indication: ARTHRITIS
     Dosage: ^FOR YEARS^
     Route: 048
  3. BUTALBITAL [Concomitant]
     Indication: HEADACHE
     Dosage: ^STARTED RECENTLY^
  4. LORAZEPAM [Concomitant]
     Indication: DEPRESSION
  5. PROTONIX [Concomitant]
     Indication: GASTRIC DISORDER
  6. GLIPIZIDE [Concomitant]
     Indication: DIABETES MELLITUS
  7. PAXIL [Concomitant]
     Indication: DEPRESSION
  8. AMLODIPINE [Concomitant]
     Indication: HYPERTENSION
  9. ATENOLOL [Concomitant]
     Indication: HYPERTENSION
  10. DIOVAN [Concomitant]
     Indication: HYPERTENSION
  11. HYDROCHLOROTHIAZIDE [Concomitant]
     Indication: FLUID RETENTION
  12. ATROVENT [Concomitant]
     Indication: SINUS DISORDER
  13. NASONEX [Concomitant]
     Indication: SINUS DISORDER
  14. MUPIROCIN [Concomitant]
     Indication: ECZEMA
  15. AMMONIUM CHLORIDE [Concomitant]
     Indication: ECZEMA
     Route: 061
  16. METOCLOPRAMIDE [Concomitant]
     Indication: NAUSEA

REACTIONS (5)
  - ABDOMINAL PAIN UPPER [None]
  - FEELING COLD [None]
  - INTENTIONAL DRUG MISUSE [None]
  - NERVOUSNESS [None]
  - PRODUCT QUALITY ISSUE [None]
